FAERS Safety Report 9535774 (Version 2)
Quarter: 2013Q3

REPORT INFORMATION
  Report Type: Spontaneous
  Country: PH (occurrence: PH)
  Receive Date: 20130919
  Receipt Date: 20130923
  Transmission Date: 20140515
  Serious: Yes (Hospitalization)
  Sender: FDA-Public Use
  Company Number: PH-ROCHE-1277008

PATIENT
  Sex: Female

DRUGS (1)
  1. XOLAIR [Suspect]
     Indication: ASTHMA
     Route: 058
     Dates: start: 20130905

REACTIONS (6)
  - Asthma [Recovered/Resolved]
  - Viral infection [Unknown]
  - Bronchitis [Unknown]
  - Vomiting [Unknown]
  - Dehydration [Unknown]
  - Urinary tract infection [Unknown]
